FAERS Safety Report 20927512 (Version 2)
Quarter: 2023Q2

REPORT INFORMATION
  Report Type: Spontaneous
  Country: US (occurrence: US)
  Receive Date: 20220607
  Receipt Date: 20230526
  Transmission Date: 20230722
  Serious: No
  Sender: FDA-Public Use
  Company Number: US-PERRIGO-21US031051

PATIENT
  Age: 77 Year
  Sex: Male

DRUGS (2)
  1. MINOXIDIL [Suspect]
     Active Substance: MINOXIDIL
     Indication: Alopecia
     Dosage: .05 CAPFUL, QD
     Route: 061
     Dates: start: 202108, end: 20211109
  2. MINOXIDIL [Suspect]
     Active Substance: MINOXIDIL
     Dosage: .05 CAPFUL, BID
     Route: 061

REACTIONS (3)
  - Condition aggravated [Unknown]
  - Drug ineffective [Unknown]
  - Inappropriate schedule of product administration [Recovered/Resolved]

NARRATIVE: CASE EVENT DATE: 20210801
